FAERS Safety Report 7893389-2 (Version None)
Quarter: 2011Q4

REPORT INFORMATION
  Report Type: 
  Country: None (occurrence: None)
  Receive Date: 20111104
  Receipt Date: 20111020
  Transmission Date: 20120403
  Serious: Yes (Other)
  Sender: FDA-Public Use
  Company Number: BR-ROCHE-1005966

PATIENT
  Sex: Male
  Weight: 90 kg

DRUGS (5)
  1. CAPTOPRIL [Concomitant]
  2. CAPTOPRIL [Concomitant]
     Route: 060
  3. CAPTOPRIL [Concomitant]
  4. HYDROCHLOROTHIAZIDE [Concomitant]
  5. VALIUM [Suspect]
     Indication: PRODUCT USED FOR UNKNOWN INDICATION
     Dosage: DOSE, FORM, ROUTE AND FREQUENCY: NOT REPORTED

REACTIONS (12)
  - DISEASE PROGRESSION [None]
  - FATIGUE [None]
  - CARDIAC DISORDER [None]
  - EPISTAXIS [None]
  - LEFT VENTRICULAR FAILURE [None]
  - MICROALBUMINURIA [None]
  - LEFT VENTRICULAR HYPERTROPHY [None]
  - COUGH [None]
  - ARTERIOSCLEROSIS [None]
  - CHEST DISCOMFORT [None]
  - CAROTID BRUIT [None]
  - HEADACHE [None]
